FAERS Safety Report 8799979 (Version 1)
Quarter: 2012Q4

REPORT INFORMATION
  Report Type: 
  Country: ES (occurrence: ES)
  Receive Date: 20120921
  Receipt Date: 20120921
  Transmission Date: 20130627
  Serious: Yes (Hospitalization, Disabling, Other)
  Sender: FDA-Public Use
  Company Number: PHHY2012ES055068

PATIENT
  Age: 62 Year
  Sex: Male

DRUGS (2)
  1. EXJADE [Suspect]
     Indication: MYELODYSPLASTIC SYNDROME
     Dosage: 500 mg, QD
  2. LENALIDOMIDE [Interacting]
     Dosage: 10 mg, UNK

REACTIONS (4)
  - Rash generalised [Recovered/Resolved]
  - Eosinophilia [Recovered/Resolved]
  - Purpura [Recovered/Resolved]
  - Drug interaction [Unknown]
